FAERS Safety Report 10189753 (Version 1)
Quarter: 2014Q2

REPORT INFORMATION
  Report Type: Spontaneous
  Country: US (occurrence: US)
  Receive Date: 20140522
  Receipt Date: 20140522
  Transmission Date: 20141212
  Serious: Yes (Other)
  Sender: FDA-Public Use
  Company Number: US-SANOFI-AVENTIS-2013SA043987

PATIENT
  Age: 43 Year
  Sex: Female
  Weight: 113.39 kg

DRUGS (8)
  1. LANTUS SOLOSTAR [Suspect]
     Indication: PRODUCT USED FOR UNKNOWN INDICATION
     Dosage: DOSE:70 UNIT(S)
     Route: 058
     Dates: start: 20120509
  2. LANTUS SOLOSTAR [Suspect]
     Indication: PRODUCT USED FOR UNKNOWN INDICATION
     Dosage: DOSE:80 UNIT(S)
     Route: 058
     Dates: start: 20120620
  3. LANTUS SOLOSTAR [Suspect]
     Indication: PRODUCT USED FOR UNKNOWN INDICATION
     Dosage: DOSE:40 UNIT(S)
     Route: 058
     Dates: start: 20130425
  4. SOLOSTAR [Concomitant]
     Dates: start: 20120509
  5. SOLOSTAR [Concomitant]
     Dates: start: 20130425
  6. SOLOSTAR [Concomitant]
     Dates: start: 20120620
  7. HUMALOG [Concomitant]
  8. LISINOPRIL [Concomitant]
     Indication: HYPERTENSION
     Route: 065
     Dates: start: 2001

REACTIONS (4)
  - Hypoglycaemia [Recovered/Resolved]
  - Hypoglycaemic unconsciousness [Recovered/Resolved]
  - Blood glucose decreased [Recovered/Resolved]
  - Tremor [Recovered/Resolved]
